FAERS Safety Report 6156165-7 (Version None)
Quarter: 2009Q2

REPORT INFORMATION
  Report Type: 
  Country: None (occurrence: None)
  Receive Date: 20090415
  Receipt Date: 20090407
  Transmission Date: 20091009
  Serious: Yes (Congenital Anomaly, Other)
  Sender: FDA-Public Use
  Company Number: GB-B.I. PHARMACEUTICALS,INC./RIDGEFIELD-2009-UK-00320UK

PATIENT

DRUGS (3)
  1. VIRAMUNE [Suspect]
     Route: 064
  2. COMBIVIR [Suspect]
     Route: 064
  3. ZIDOVUDINE [Concomitant]
     Route: 064
     Dates: start: 20081208, end: 20090107

REACTIONS (1)
  - FALLOT'S TETRALOGY [None]
